FAERS Safety Report 13762414 (Version 1)
Quarter: 2017Q3

REPORT INFORMATION
  Report Type: Spontaneous
  Country: US (occurrence: US)
  Receive Date: 20170717
  Receipt Date: 20170717
  Transmission Date: 20171127
  Serious: No
  Sender: FDA-Public Use
  Company Number: None

PATIENT
  Age: 78 Year
  Sex: Female

DRUGS (1)
  1. EPOPROSTENOL. [Suspect]
     Active Substance: EPOPROSTENOL

REACTIONS (7)
  - Retching [None]
  - Vomiting [None]
  - Drug intolerance [None]
  - Oxygen saturation decreased [None]
  - Injection site swelling [None]
  - Pulmonary oedema [None]
  - Injection site erythema [None]

NARRATIVE: CASE EVENT DATE: 20170503
